FAERS Safety Report 5922499-1 (Version None)
Quarter: 2008Q4

REPORT INFORMATION
  Report Type: 
  Country: None (occurrence: None)
  Receive Date: 20081017
  Receipt Date: 20081006
  Transmission Date: 20090506
  Serious: Yes (Other)
  Sender: FDA-Public Use
  Company Number: PHHY2008BR23760

PATIENT
  Sex: Female
  Weight: 61 kg

DRUGS (4)
  1. CODATEN [Suspect]
     Indication: INTERVERTEBRAL DISC PROTRUSION
     Dosage: 50 MG EVERY 12 HOURS
     Route: 048
     Dates: start: 20080901
  2. MIOSAN [Concomitant]
     Dosage: UNK
     Route: 048
  3. PROFENID [Concomitant]
     Dosage: 50 MG (1 TABLET) EVERY 8 HOURS
     Route: 048
  4. SIRDALUD [Concomitant]
     Dosage: 2 MG UNK
     Route: 048

REACTIONS (3)
  - DYSPNOEA [None]
  - LARYNGEAL OEDEMA [None]
  - THROAT TIGHTNESS [None]
